FAERS Safety Report 15768929 (Version 1)
Quarter: 2018Q4

REPORT INFORMATION
  Report Type: Spontaneous
  Country: US (occurrence: US)
  Receive Date: 20181228
  Receipt Date: 20181228
  Transmission Date: 20190205
  Serious: Yes (Other)
  Sender: FDA-Public Use
  Company Number: US-ROCHE-2236741

PATIENT
  Sex: Male
  Weight: 94.43 kg

DRUGS (6)
  1. ROSUVASTATIN. [Concomitant]
     Active Substance: ROSUVASTATIN
     Dosage: ONGOING: UNKNOWN
     Route: 048
     Dates: start: 20181226
  2. DUONEB [Concomitant]
     Active Substance: ALBUTEROL SULFATE\IPRATROPIUM BROMIDE
     Dosage: ONGOING: UNKNOWN
     Route: 055
     Dates: start: 20180319
  3. XOLAIR [Suspect]
     Active Substance: OMALIZUMAB
     Indication: ASTHMA
     Route: 065
     Dates: start: 20180410, end: 20181226
  4. ALLEGRA D-12 HOUR [Concomitant]
     Active Substance: FEXOFENADINE HYDROCHLORIDE\PSEUDOEPHEDRINE HYDROCHLORIDE
     Dosage: ONGOING: UNKNOWN
     Route: 048
     Dates: start: 20180319
  5. PROAIR RESPICLICK [Concomitant]
     Active Substance: ALBUTEROL SULFATE
     Dosage: ONGOING: UNKNOWN
     Route: 055
     Dates: start: 20180319
  6. PROMETHAZINE CO [Concomitant]
     Dosage: ONGOING: UNKNOWN
     Route: 048
     Dates: start: 20180319

REACTIONS (3)
  - Angina pectoris [Unknown]
  - Back pain [Unknown]
  - Chest pain [Unknown]
